FAERS Safety Report 8505928-9 (Version None)
Quarter: 2012Q3

REPORT INFORMATION
  Report Type: 
  Country: None (occurrence: None)
  Receive Date: 20120712
  Receipt Date: 20120709
  Transmission Date: 20120928
  Serious: Yes (Other)
  Sender: FDA-Public Use
  Company Number: CA-TEVA-347756USA

PATIENT
  Age: 50 Year
  Sex: Female

DRUGS (2)
  1. FENTANYL [Suspect]
     Indication: PAIN
     Route: 055
  2. FENTANYL [Suspect]
     Indication: INTENTIONAL DRUG MISUSE
     Route: 055

REACTIONS (2)
  - INTENTIONAL DRUG MISUSE [None]
  - ALVEOLAR PROTEINOSIS [None]
